FAERS Safety Report 7466680-1 (Version None)
Quarter: 2011Q2

REPORT INFORMATION
  Report Type: 
  Country: None (occurrence: None)
  Receive Date: 20110509
  Receipt Date: 20110502
  Transmission Date: 20111010
  Serious: Yes (Death, Hospitalization, Other)
  Sender: FDA-Public Use
  Company Number: US-CELGENEUS-163-21880-09072399

PATIENT
  Sex: Female
  Weight: 94.5 kg

DRUGS (9)
  1. DEXAMETHASONE [Suspect]
     Route: 065
  2. DOXIL [Suspect]
     Route: 065
  3. MELPHALAN HYDROCHLORIDE [Suspect]
     Indication: MULTIPLE MYELOMA
  4. NEXIUM [Concomitant]
     Route: 065
  5. REVLIMID [Suspect]
     Indication: MULTIPLE MYELOMA
     Dosage: 10 MILLIGRAM
     Route: 048
     Dates: start: 20060202
  6. VINCRISTINE [Suspect]
     Route: 065
  7. ETOPOSIDE [Concomitant]
     Indication: LYMPHOHISTIOCYTOSIS
     Route: 065
  8. REVLIMID [Suspect]
     Dosage: 10 MILLIGRAM
     Route: 048
     Dates: start: 20090429, end: 20090707
  9. AVELOX [Concomitant]
     Route: 065

REACTIONS (7)
  - ENTEROCOCCAL SEPSIS [None]
  - SUBARACHNOID HAEMORRHAGE [None]
  - MULTI-ORGAN FAILURE [None]
  - CARDIO-RESPIRATORY ARREST [None]
  - RENAL FAILURE ACUTE [None]
  - HODGKIN'S DISEASE [None]
  - CHOLESTASIS [None]
